FAERS Safety Report 20175872 (Version 1)
Quarter: 2021Q4

REPORT INFORMATION
  Report Type: Spontaneous
  Country: DE (occurrence: DE)
  Receive Date: 20211213
  Receipt Date: 20211213
  Transmission Date: 20220303
  Serious: Yes (Hospitalization)
  Sender: FDA-Public Use
  Company Number: DE-ADRED-05515-02

PATIENT
  Age: 85 Year
  Sex: Female

DRUGS (18)
  1. ELIQUIS [Suspect]
     Active Substance: APIXABAN
     Indication: Product used for unknown indication
     Dosage: 2.5 MILLIGRAM, BID
     Route: 048
  2. XIPAMIDE [Suspect]
     Active Substance: XIPAMIDE
     Indication: Product used for unknown indication
     Dosage: 10 MG, 1-0-0-0, TABLETTEN
     Route: 048
  3. METOPROLOL SUCCINATE [Suspect]
     Active Substance: METOPROLOL SUCCINATE
     Indication: Product used for unknown indication
     Dosage: 100 MG, 1-0-1-0, TABLETTEN
     Route: 048
  4. CITALOPRAM [Suspect]
     Active Substance: CITALOPRAM HYDROBROMIDE
     Indication: Product used for unknown indication
     Dosage: 40 MG, 1-0-0-0, TABLETTEN
     Route: 048
  5. TORSEMIDE [Suspect]
     Active Substance: TORSEMIDE
     Indication: Product used for unknown indication
     Dosage: 20 MG, 1.5-1-0-0, TABLETTEN
     Route: 048
  6. Novaminsulfon 500-1A Pharma [Concomitant]
     Indication: Product used for unknown indication
     Dosage: 500 MILLIGRAM, BID
     Route: 048
  7. Aranesp 60Mikrogramm [Concomitant]
     Indication: Product used for unknown indication
     Dosage: 60 ?G
     Route: 058
  8. L-Thyrox HEXAL 75Mikrogramm [Concomitant]
     Indication: Product used for unknown indication
     Dosage: 75 ?G, 1-0-0-0, TABLETTEN
     Route: 048
  9. Daxas 500Mikrogramm [Concomitant]
     Indication: Product used for unknown indication
     Dosage: 500 ?G, 1-0-0-0, TABLETTEN
     Route: 048
  10. Zopiclon-1A Pharma 7,5mg [Concomitant]
     Indication: Product used for unknown indication
     Dosage: 7.5 MG, 0-0-0-1, TABLETTEN
     Route: 048
  11. Mirtazapin-1A Pharma 30mg [Concomitant]
     Indication: Product used for unknown indication
     Dosage: 30 MG, 0-0-1-0, TABLETTEN
     Route: 048
  12. Colecalciferol Aristo 20000I.E. [Concomitant]
     Indication: Product used for unknown indication
     Dosage: 500 ?G
     Route: 048
  13. OMEP 40mg [Concomitant]
     Indication: Product used for unknown indication
     Dosage: 40 MG, 1-0-0-0, KAPSELN
     Route: 048
  14. Humalog 100Einheiten/ml Injektionsl?sung [Concomitant]
     Indication: Product used for unknown indication
     Dosage: UNK
     Route: 058
  15. ADICLAIR [Concomitant]
     Indication: Product used for unknown indication
     Dosage: 100000 IE, SALBE
     Route: 003
  16. Elebrato Ellipta 92Mikrogramm/55Mikrogramm/22Mikrogramm [Concomitant]
     Indication: Product used for unknown indication
     Dosage: 22|75.93|54.79 ?G, 1-0-0-0, INHALATIONSPULVER
     Route: 055
  17. Levemir FlexPen 100Einheiten/ml [Concomitant]
     Indication: Product used for unknown indication
     Dosage: 100 IE, 0-0-28-0, FERTIGSPRITZEN
     Route: 058
  18. Tavor 1,0mg [Concomitant]
     Indication: Product used for unknown indication
     Dosage: 1 MG, BEI BEDARF, TABLETTEN
     Route: 048

REACTIONS (4)
  - Generalised oedema [Unknown]
  - Dyspnoea [Unknown]
  - Weight increased [Unknown]
  - Polyuria [Unknown]
